FAERS Safety Report 6083946-0 (Version None)
Quarter: 2009Q1

REPORT INFORMATION
  Report Type: 
  Country: None (occurrence: None)
  Receive Date: 20090219
  Receipt Date: 20090216
  Transmission Date: 20090719
  Serious: Yes (Other)
  Sender: FDA-Public Use
  Company Number: US-ASTRAZENECA-2009UW04393

PATIENT
  Age: 67 Year
  Sex: Female
  Weight: 83.9 kg

DRUGS (12)
  1. NEXIUM [Suspect]
     Indication: GASTROOESOPHAGEAL REFLUX DISEASE
     Route: 048
     Dates: start: 20060101
  2. HUMULIN 70/30 [Concomitant]
     Indication: DIABETES MELLITUS
     Dosage: 60 UNITS
     Route: 058
  3. GLUCOPHAGE [Concomitant]
     Indication: DIABETES MELLITUS
     Route: 048
  4. GLIPIZIDE [Concomitant]
     Indication: DIABETES MELLITUS
  5. COUMADIN [Concomitant]
     Route: 048
  6. LASIX [Concomitant]
     Route: 048
  7. SULFAPYRIDINE [Concomitant]
  8. PAXIL [Concomitant]
     Route: 048
  9. LORAZEPAM [Concomitant]
     Route: 048
  10. METOPROLOL TARTRATE [Concomitant]
  11. ASPIRIN [Concomitant]
     Route: 048
  12. MAGNESIUM SULFATE [Concomitant]
     Route: 048

REACTIONS (6)
  - ARRHYTHMIA [None]
  - CARDIAC OPERATION [None]
  - CARDIAC PACEMAKER INSERTION [None]
  - CATARACT OPERATION [None]
  - EYE LASER SURGERY [None]
  - VISION BLURRED [None]
